FAERS Safety Report 18814030 (Version 1)
Quarter: 2021Q1

REPORT INFORMATION
  Report Type: Other
  Country: US (occurrence: US)
  Receive Date: 20210201
  Receipt Date: 20210201
  Transmission Date: 20210419
  Serious: Yes (Other)
  Sender: FDA-Public Use
  Company Number: US-ROCHE-2751931

PATIENT
  Sex: Female

DRUGS (1)
  1. OCREVUS [Suspect]
     Active Substance: OCRELIZUMAB
     Indication: PRIMARY PROGRESSIVE MULTIPLE SCLEROSIS
     Dosage: SEE PROTOCOL SHEET?DATE OF TREATMENT: 14/APR/2020, 28/APR/2020, 24/SEP/2020,
     Route: 065

REACTIONS (1)
  - Neoplasm malignant [Unknown]
